FAERS Safety Report 9874216 (Version 1)
Quarter: 2014Q1

REPORT INFORMATION
  Report Type: Other
  Country: US (occurrence: US)
  Receive Date: 20140206
  Receipt Date: 20140206
  Transmission Date: 20141002
  Serious: No
  Sender: FDA-Public Use
  Company Number: US-ACORDA-ACO_34964_2013

PATIENT
  Sex: Female
  Weight: 52.61 kg

DRUGS (4)
  1. AMPYRA [Suspect]
     Indication: GAIT DISTURBANCE
     Dosage: 10 MG, QOD
     Route: 048
     Dates: start: 20130210, end: 20130226
  2. AMPYRA [Suspect]
     Dosage: 10 MG, Q 12HRS
     Route: 048
     Dates: start: 20130227
  3. MACRODANTIN [Concomitant]
     Indication: PRODUCT USED FOR UNKNOWN INDICATION
     Dosage: UNK
  4. VERAPAMIL [Concomitant]
     Indication: PRODUCT USED FOR UNKNOWN INDICATION
     Dosage: UNK

REACTIONS (1)
  - Nausea [Not Recovered/Not Resolved]
